FAERS Safety Report 7265562-8 (Version None)
Quarter: 2011Q1

REPORT INFORMATION
  Report Type: 
  Country: None (occurrence: None)
  Receive Date: 20110131
  Receipt Date: 20110127
  Transmission Date: 20110831
  Serious: Yes (Other)
  Sender: FDA-Public Use
  Company Number: ES-ROCHE-756016

PATIENT
  Age: 35 Year
  Sex: Male

DRUGS (3)
  1. PEGASYS [Interacting]
     Route: 058
     Dates: start: 20101126
  2. PEGASYS [Suspect]
     Indication: HEPATITIS C
     Dosage: FORM: PREFILLED SYRINGE
     Route: 058
     Dates: start: 20100922, end: 20101126
  3. REBETOL [Interacting]
     Indication: HEPATITIS C
     Route: 048
     Dates: start: 20100922

REACTIONS (2)
  - DRUG INTERACTION [None]
  - THROMBOCYTOPENIA [None]
